FAERS Safety Report 9995438 (Version 1)
Quarter: 2014Q1

REPORT INFORMATION
  Report Type: Spontaneous
  Country: GB (occurrence: GB)
  Receive Date: 20140311
  Receipt Date: 20140311
  Transmission Date: 20141002
  Serious: Yes (Other)
  Sender: FDA-Public Use
  Company Number: GB-VERTEX PHARMACEUTICALS INC-2014-001191

PATIENT
  Age: 55 Year
  Sex: Female
  Weight: 76 kg

DRUGS (5)
  1. INCIVO [Suspect]
     Indication: HEPATITIS C
     Dosage: 1125.0
     Route: 048
     Dates: start: 20140206, end: 20140213
  2. PROPRANOLOL [Concomitant]
     Indication: PRODUCT USED FOR UNKNOWN INDICATION
     Dosage: UNK
     Route: 065
  3. SERTRALINE [Concomitant]
     Indication: PRODUCT USED FOR UNKNOWN INDICATION
     Dosage: UNK
     Route: 065
  4. PEGYLATED INTERFERON ALFA-2A [Concomitant]
     Indication: HEPATITIS C
     Dosage: UNK
     Route: 065
     Dates: start: 20140206, end: 20140213
  5. RIBAVIRIN [Concomitant]
     Indication: PRODUCT USED FOR UNKNOWN INDICATION
     Dosage: UNK
     Route: 065

REACTIONS (1)
  - Rash [Recovered/Resolved]
